FAERS Safety Report 8278039-8 (Version None)
Quarter: 2012Q2

REPORT INFORMATION
  Report Type: 
  Country: None (occurrence: None)
  Receive Date: 20120412
  Receipt Date: 20120330
  Transmission Date: 20120825
  Serious: Yes (Other)
  Sender: FDA-Public Use
  Company Number: NZ-ROCHE-1054406

PATIENT
  Sex: Female
  Weight: 72.4 kg

DRUGS (6)
  1. MABTHERA [Suspect]
     Dosage: MAINTENANCE TREATMENT
     Route: 042
     Dates: start: 20110301
  2. VINCRISTINE [Concomitant]
     Indication: PRODUCT USED FOR UNKNOWN INDICATION
     Route: 065
     Dates: end: 20100805
  3. MABTHERA [Suspect]
     Indication: PRODUCT USED FOR UNKNOWN INDICATION
     Dates: end: 20100805
  4. PREDNISOLONE [Concomitant]
     Indication: PRODUCT USED FOR UNKNOWN INDICATION
     Route: 065
     Dates: end: 20100805
  5. CYCLOPHOSPHAMIDE [Concomitant]
     Indication: PRODUCT USED FOR UNKNOWN INDICATION
     Route: 065
     Dates: end: 20100805
  6. DOXORUBICIN HCL [Concomitant]
     Indication: PRODUCT USED FOR UNKNOWN INDICATION
     Route: 065
     Dates: end: 20100805

REACTIONS (1)
  - HYPOGAMMAGLOBULINAEMIA [None]
